FAERS Safety Report 7031941-7 (Version None)
Quarter: 2010Q4

REPORT INFORMATION
  Report Type: 
  Country: None (occurrence: None)
  Receive Date: 20101007
  Receipt Date: 20101004
  Transmission Date: 20110411
  Serious: Yes (Hospitalization, Other)
  Sender: FDA-Public Use
  Company Number: US-ELI_LILLY_AND_COMPANY-US201002003678

PATIENT
  Sex: Male
  Weight: 117.91 kg

DRUGS (7)
  1. BYETTA [Suspect]
     Dosage: UNK, UNKNOWN
     Route: 065
     Dates: start: 20080601, end: 20080731
  2. ZESTRIL [Concomitant]
     Indication: CARDIAC DISORDER
     Dates: start: 20090501
  3. LEXAPRO [Concomitant]
     Indication: DEPRESSION
     Dates: start: 20080901
  4. GLUCOPHAGE [Concomitant]
     Indication: DIABETES MELLITUS
     Dates: start: 20080901
  5. INSULIN [Concomitant]
     Indication: DIABETES MELLITUS
     Dates: start: 20040901
  6. TYLENOL                                 /SCH/ [Concomitant]
     Indication: HEADACHE
     Dates: start: 20080701
  7. PRAVASTATIN [Concomitant]
     Dates: start: 20080901

REACTIONS (2)
  - OFF LABEL USE [None]
  - PANCREATITIS [None]
